FAERS Safety Report 19025771 (Version 1)
Quarter: 2021Q1

REPORT INFORMATION
  Report Type: Spontaneous
  Country: US (occurrence: US)
  Receive Date: 20210318
  Receipt Date: 20210318
  Transmission Date: 20210420
  Serious: Yes (Other)
  Sender: FDA-Public Use
  Company Number: US-IMPRIMIS NJOF-2108154

PATIENT

DRUGS (1)
  1. DEX?MOXI PF [Suspect]
     Active Substance: DEXAMETHASONE SODIUM PHOSPHATE\MOXIFLOXACIN HYDROCHLORIDE MONOHYDRATE
     Indication: CATARACT
     Route: 031

REACTIONS (1)
  - Corneal disorder [Recovering/Resolving]
